FAERS Safety Report 23593543 (Version 1)
Quarter: 2024Q1

REPORT INFORMATION
  Report Type: Spontaneous
  Country: BR (occurrence: BR)
  Receive Date: 20240304
  Receipt Date: 20240304
  Transmission Date: 20240409
  Serious: Yes (Hospitalization, Other)
  Sender: FDA-Public Use
  Company Number: BR-002147023-NVSC2024BR044529

PATIENT
  Age: 85 Year
  Sex: Female

DRUGS (5)
  1. EXELON [Suspect]
     Active Substance: RIVASTIGMINE TARTRATE
     Indication: Memory impairment
     Dosage: 1 DOSAGE FORM, QD
     Route: 062
     Dates: start: 20240113, end: 20240211
  2. CENTROVITAM MULHER [Concomitant]
     Indication: Product used for unknown indication
     Dosage: UNK
     Route: 065
  3. DPREV [Concomitant]
     Indication: Product used for unknown indication
     Dosage: UNK
     Route: 065
  4. OXYBUTYNIN CHLORIDE [Concomitant]
     Active Substance: OXYBUTYNIN CHLORIDE
     Indication: Urinary incontinence
     Dosage: UNK
     Route: 065
  5. ZOLOFT [Concomitant]
     Active Substance: SERTRALINE HYDROCHLORIDE
     Indication: Product used for unknown indication
     Dosage: UNK
     Route: 065

REACTIONS (5)
  - Atrial fibrillation [Recovering/Resolving]
  - Chest pain [Recovering/Resolving]
  - Heart rate increased [Recovering/Resolving]
  - Gastrooesophageal reflux disease [Unknown]
  - Product use in unapproved indication [Unknown]

NARRATIVE: CASE EVENT DATE: 20240211
